FAERS Safety Report 4357780-3 (Version None)
Quarter: 2004Q2

REPORT INFORMATION
  Report Type: 
  Country: None (occurrence: None)
  Receive Date: 20040512
  Receipt Date: 20040427
  Transmission Date: 20050107
  Serious: Yes (Other)
  Sender: FDA-Public Use
  Company Number: HQWYE648129APR04

PATIENT
  Age: 63 Year
  Sex: Female
  Weight: 68.1 kg

DRUGS (9)
  1. EFFEXOR XR [Suspect]
     Indication: DEPRESSION
     Dosage: 150 MG 2X PER 1 DAY, ORAL
     Route: 048
     Dates: start: 20000101, end: 20040401
  2. DIAZEPAM [Concomitant]
  3. MEDROXYPROGESTERONE [Concomitant]
  4. PREMARIN [Concomitant]
  5. CYTOMEL [Concomitant]
  6. ATENOLOL [Concomitant]
  7. CHONDROITIN SULFATE (CHONDROITIN SULFATE) [Concomitant]
  8. ACETAMINOPHEN [Concomitant]
  9. GLUCOSAMINE (GLUCOSAMINE) [Concomitant]

REACTIONS (5)
  - ABNORMAL BEHAVIOUR [None]
  - ANGER [None]
  - DRUG WITHDRAWAL SYNDROME [None]
  - HOMICIDAL IDEATION [None]
  - LETHARGY [None]
